FAERS Safety Report 11773820 (Version 3)
Quarter: 2016Q1

REPORT INFORMATION
  Report Type: Spontaneous
  Country: US (occurrence: US)
  Receive Date: 20151124
  Receipt Date: 20160315
  Transmission Date: 20160525
  Serious: No
  Sender: FDA-Public Use
  Company Number: US-009507513-1511USA007716

PATIENT
  Age: 26 Year
  Sex: Female
  Weight: 49.89 kg

DRUGS (3)
  1. NEXPLANON [Suspect]
     Active Substance: ETONOGESTREL
     Dosage: UNK
     Route: 059
     Dates: end: 20151022
  2. NEXPLANON [Suspect]
     Active Substance: ETONOGESTREL
     Indication: CONTRACEPTION
     Dosage: 68 MG/1 ROD EVERY 3 YEARS
     Route: 059
     Dates: start: 20151022, end: 20151022
  3. NEXPLANON [Suspect]
     Active Substance: ETONOGESTREL
     Dosage: 68 MG/1 ROD EVERY 3 YEARS
     Route: 059
     Dates: start: 20151022

REACTIONS (3)
  - Product quality issue [Unknown]
  - Device difficult to use [Recovered/Resolved]
  - No adverse event [Unknown]

NARRATIVE: CASE EVENT DATE: 20151022
